FAERS Safety Report 18154295 (Version 3)
Quarter: 2021Q1

REPORT INFORMATION
  Report Type: Spontaneous
  Country: CA (occurrence: CA)
  Receive Date: 20200817
  Receipt Date: 20210202
  Transmission Date: 20210419
  Serious: Yes (Other)
  Sender: FDA-Public Use
  Company Number: CA-CELLTRION INC.-2020CA023874

PATIENT

DRUGS (6)
  1. INFLECTRA [Suspect]
     Active Substance: INFLIXIMAB-DYYB
     Indication: COLITIS ULCERATIVE
     Dosage: 5 MG/KG, EVERY 4 WEEKS
     Route: 042
  2. INFLECTRA [Suspect]
     Active Substance: INFLIXIMAB-DYYB
     Dosage: (400) 5 MG/KG, EVERY 4 WEEKS
     Route: 042
     Dates: start: 20210123
  3. INFLECTRA [Suspect]
     Active Substance: INFLIXIMAB-DYYB
     Indication: INFLAMMATORY BOWEL DISEASE
     Dosage: (400) 5 MG/KG, EVERY 4 WEEKS
     Route: 042
     Dates: start: 20200729
  4. INFLECTRA [Suspect]
     Active Substance: INFLIXIMAB-DYYB
     Dosage: (400) 5 MG/KG, EVERY 4 WEEKS
     Route: 042
     Dates: start: 20201224
  5. INFLECTRA [Suspect]
     Active Substance: INFLIXIMAB-DYYB
     Dosage: (400) 5 MG/KG, EVERY 4 WEEKS
     Route: 042
     Dates: start: 20210123
  6. INFLECTRA [Suspect]
     Active Substance: INFLIXIMAB-DYYB
     Dosage: (400) 5 MG/KG, EVERY 4 WEEKS
     Route: 042
     Dates: start: 20201224

REACTIONS (7)
  - Drug-induced liver injury [Unknown]
  - Off label use [Unknown]
  - Intentional product use issue [Unknown]
  - Alcoholic liver disease [Unknown]
  - Purpura [Not Recovered/Not Resolved]
  - Rash pruritic [Not Recovered/Not Resolved]
  - Hepatic steatosis [Unknown]
